FAERS Safety Report 23240016 (Version 1)
Quarter: 2023Q4

REPORT INFORMATION
  Report Type: Spontaneous
  Country: US (occurrence: None)
  Receive Date: 20231128
  Receipt Date: 20231128
  Transmission Date: 20240110
  Serious: No
  Sender: FDA-Public Use
  Company Number: None

PATIENT
  Sex: Female

DRUGS (7)
  1. ICATIBANT ACETATE [Suspect]
     Active Substance: ICATIBANT ACETATE
     Indication: Complement deficiency disease
     Dosage: 30MG AS NEEDED SUBCUTANEOUSLY
     Route: 058
     Dates: start: 202011
  2. FIRAZYR SYR (3-PAK) [Concomitant]
  3. EPINEPHRINE AUTO-INJ [Concomitant]
  4. BERINERT KIT [Concomitant]
  5. ICATIBANT ACETATE [Concomitant]
     Active Substance: ICATIBANT ACETATE
  6. FIRAZYR SYR [Concomitant]
  7. TAKHZYRO PFS [Concomitant]

REACTIONS (1)
  - Angioedema [None]
